FAERS Safety Report 5154332-2 (Version None)
Quarter: 2006Q4

REPORT INFORMATION
  Report Type: 
  Country: None (occurrence: None)
  Receive Date: 20061114
  Receipt Date: 20061031
  Transmission Date: 20070319
  Serious: Yes (Other)
  Sender: FDA-Public Use
  Company Number: 2006135642

PATIENT
  Sex: Female

DRUGS (10)
  1. NEURONTIN [Suspect]
     Indication: NEURALGIA
  2. NEURONTIN [Suspect]
     Indication: POST HERPETIC NEURALGIA
  3. LYRICA [Suspect]
     Indication: NEURALGIA
  4. LYRICA [Suspect]
     Indication: POST HERPETIC NEURALGIA
  5. SERTRALINE [Suspect]
     Indication: NEURALGIA
  6. SERTRALINE [Suspect]
     Indication: POST HERPETIC NEURALGIA
  7. AMITRIPTYLINE HCL [Concomitant]
  8. CODEINE [Concomitant]
  9. DRUG, UNSPECIFIED [Concomitant]
  10. ALL OTHER THERAPEUTIC PRODUCTS [Concomitant]

REACTIONS (5)
  - ATRIAL FIBRILLATION [None]
  - DIZZINESS [None]
  - DRUG INEFFECTIVE [None]
  - OEDEMA PERIPHERAL [None]
  - VOMITING PROJECTILE [None]
